FAERS Safety Report 25548873 (Version 1)
Quarter: 2025Q3

REPORT INFORMATION
  Report Type: Spontaneous
  Country: US (occurrence: None)
  Receive Date: 20250713
  Receipt Date: 20250713
  Transmission Date: 20251021
  Serious: Yes (Hospitalization)
  Sender: FDA-CTU
  Company Number: None

PATIENT
  Age: 84 Year
  Sex: Female
  Weight: 46.8 kg

DRUGS (13)
  1. REXULTI [Suspect]
     Active Substance: BREXPIPRAZOLE
     Indication: Product used for unknown indication
     Dosage: OTHER QUANTITY : 30 TABLET(S);?FREQUENCY : DAILY;?
     Route: 048
     Dates: start: 20241108, end: 20250122
  2. DEVICE [Concomitant]
     Active Substance: DEVICE
  3. Cochlear implant [Concomitant]
  4. LOSARTAN [Concomitant]
     Active Substance: LOSARTAN
  5. BUPROPION [Concomitant]
     Active Substance: BUPROPION
  6. FUROSEMIDE [Concomitant]
     Active Substance: FUROSEMIDE
  7. TRELEGY ELLIPTA [Concomitant]
     Active Substance: FLUTICASONE FUROATE\UMECLIDINIUM BROMIDE\VILANTEROL TRIFENATATE
  8. MEMANTINE [Concomitant]
     Active Substance: MEMANTINE
  9. LOMOTIL [Concomitant]
     Active Substance: ATROPINE SULFATE\DIPHENOXYLATE HYDROCHLORIDE
  10. ALBUTEROL [Concomitant]
     Active Substance: ALBUTEROL
  11. TYLENOL [Concomitant]
     Active Substance: ACETAMINOPHEN
  12. ROBITUSSIN (GUAIFENESIN) [Concomitant]
     Active Substance: GUAIFENESIN
  13. MUCINEX [Concomitant]
     Active Substance: GUAIFENESIN

REACTIONS (2)
  - Unresponsive to stimuli [None]
  - Pneumonia aspiration [None]

NARRATIVE: CASE EVENT DATE: 20241120
